FAERS Safety Report 6853207-8 (Version None)
Quarter: 2010Q3

REPORT INFORMATION
  Report Type: 
  Country: None (occurrence: None)
  Receive Date: 20100717
  Receipt Date: 20080114
  Transmission Date: 20110219
  Serious: No
  Sender: FDA-Public Use
  Company Number: US-PFIZER INC-2007101428

PATIENT
  Sex: Male
  Weight: 131.81 kg

DRUGS (9)
  1. CHANTIX [Suspect]
     Indication: SMOKING CESSATION THERAPY
     Route: 048
     Dates: start: 20071027
  2. INSULIN DETEMIR [Concomitant]
  3. GLUCOPHAGE [Concomitant]
  4. VALSARTAN [Concomitant]
  5. PROZAC [Concomitant]
  6. ADDERALL 10 [Concomitant]
  7. DUETACT [Concomitant]
  8. ZOCOR [Concomitant]
  9. CLARITIN [Concomitant]

REACTIONS (1)
  - DRUG INEFFECTIVE [None]
